FAERS Safety Report 17087147 (Version 1)
Quarter: 2019Q4

REPORT INFORMATION
  Report Type: Spontaneous
  Country: ET (occurrence: ET)
  Receive Date: 20191128
  Receipt Date: 20191128
  Transmission Date: 20200122
  Serious: Yes (Hospitalization, Other)
  Sender: FDA-Public Use
  Company Number: ET-LUPIN PHARMACEUTICALS INC.-2019-07657

PATIENT
  Age: 50 Year

DRUGS (1)
  1. DOXYCYCLINE TABLETS [Suspect]
     Active Substance: DOXYCYCLINE
     Indication: PYREXIA
     Dosage: UNK
     Route: 065

REACTIONS (4)
  - Oesophagitis [Unknown]
  - Syncope [Unknown]
  - Oesophageal ulcer [Unknown]
  - Hyperhidrosis [Unknown]
